FAERS Safety Report 12488830 (Version 1)
Quarter: 2016Q2

REPORT INFORMATION
  Report Type: Spontaneous
  Country: JP (occurrence: JP)
  Receive Date: 20160622
  Receipt Date: 20160622
  Transmission Date: 20160815
  Serious: Yes (Hospitalization)
  Sender: FDA-Public Use
  Company Number: JP-PFIZER INC-2016301701

PATIENT
  Age: 90 Year
  Sex: Female

DRUGS (5)
  1. LANIRAPID [Concomitant]
     Active Substance: METILDIGOXIN
  2. MEXILETINE HYDROCHLORIDE. [Suspect]
     Active Substance: MEXILETINE HYDROCHLORIDE
  3. AMLODIPINE BESILATE [Concomitant]
     Active Substance: AMLODIPINE BESYLATE
  4. LIPIDIL [Concomitant]
     Active Substance: FENOFIBRATE
  5. ALDACTONE A [Suspect]
     Active Substance: SPIRONOLACTONE
     Dosage: 25 MG, DAILY
     Route: 048

REACTIONS (2)
  - Blood sodium decreased [Unknown]
  - Epilepsy [Unknown]
